FAERS Safety Report 7932105-2 (Version None)
Quarter: 2011Q4

REPORT INFORMATION
  Report Type: 
  Country: None (occurrence: None)
  Receive Date: 20111121
  Receipt Date: 20111110
  Transmission Date: 20120403
  Serious: Yes (Disabling)
  Sender: FDA-Public Use
  Company Number: FR-ASTRAZENECA-2011SE68136

PATIENT
  Age: 63 Year
  Sex: Female

DRUGS (3)
  1. MODOPAR [Concomitant]
     Indication: PARKINSON'S DISEASE
  2. FOSAMAX [Concomitant]
     Indication: OSTEOPOROSIS
  3. TAMOXIFEN CITRATE [Suspect]
     Indication: BREAST CANCER
     Route: 048

REACTIONS (3)
  - ABNORMAL SENSATION IN EYE [None]
  - DRY EYE [None]
  - LENTICULAR OPACITIES [None]
